FAERS Safety Report 14375819 (Version 2)
Quarter: 2018Q1

REPORT INFORMATION
  Report Type: Spontaneous
  Country: US (occurrence: US)
  Receive Date: 20180111
  Receipt Date: 20180326
  Transmission Date: 20180509
  Serious: No
  Sender: FDA-Public Use
  Company Number: US-LUNDBECK-DKLU2037746

PATIENT
  Sex: Female

DRUGS (1)
  1. NORTHERA [Suspect]
     Active Substance: DROXIDOPA
     Indication: PRODUCT USED FOR UNKNOWN INDICATION
     Dosage: TITRATION COMPLETE
     Route: 065

REACTIONS (21)
  - Dry mouth [Unknown]
  - Back pain [Unknown]
  - Depression [Unknown]
  - Drug effect delayed [Unknown]
  - Hypopnoea [Unknown]
  - Fatigue [Unknown]
  - Dizziness [Unknown]
  - Dyskinesia [Unknown]
  - Freezing phenomenon [Unknown]
  - Asthenia [Unknown]
  - Blood pressure decreased [Unknown]
  - Weight decreased [Unknown]
  - Fine motor skill dysfunction [Unknown]
  - Grief reaction [Unknown]
  - Feeling abnormal [Unknown]
  - Posture abnormal [Unknown]
  - Tremor [Unknown]
  - Muscle rigidity [Unknown]
  - Gait disturbance [Unknown]
  - Motor dysfunction [Unknown]
  - Musculoskeletal stiffness [Unknown]
